FAERS Safety Report 4369453-1 (Version None)
Quarter: 2004Q2

REPORT INFORMATION
  Report Type: 
  Country: None (occurrence: None)
  Receive Date: 20040601
  Receipt Date: 20040601
  Transmission Date: 20050107
  Serious: Yes (Life-Threatening)
  Sender: FDA-Public Use
  Company Number: None

PATIENT
  Age: 58 Year
  Sex: Male
  Weight: 86.1834 kg

DRUGS (5)
  1. LIPITOR [Suspect]
     Indication: DEMENTIA
     Dosage: 10 MG
     Dates: start: 19980127, end: 19991129
  2. MEVACOR [Suspect]
     Dosage: 40 MG ( TOO STRONG)
     Dates: start: 19991230, end: 20000425
  3. MEVACOR [Suspect]
     Dosage: 40 MG ( TOO STRONG)
     Dates: start: 19991104
  4. LIPITOR [Suspect]
     Dosage: 10 MG
     Dates: start: 19991129
  5. MEVACOR [Suspect]
     Dosage: 40 MG
     Dates: start: 19991230, end: 20000425

REACTIONS (1)
  - BRAIN DAMAGE [None]
